FAERS Safety Report 10023016 (Version 3)
Quarter: 2015Q2

REPORT INFORMATION
  Report Type: Spontaneous
  Country: US (occurrence: US)
  Receive Date: 20140319
  Receipt Date: 20150616
  Transmission Date: 20150821
  Serious: Yes (Hospitalization, Disabling, Other)
  Sender: FDA-Public Use
  Company Number: US-SANOFI-AVENTIS-2012SA003179

PATIENT
  Age: 45 Year
  Sex: Male

DRUGS (1)
  1. PLAVIX [Suspect]
     Active Substance: CLOPIDOGREL BISULFATE
     Indication: ACUTE CORONARY SYNDROME
     Route: 048
     Dates: start: 20020709, end: 20100430

REACTIONS (23)
  - Deformity [Not Recovered/Not Resolved]
  - Social problem [Not Recovered/Not Resolved]
  - Cerebral haemorrhage [Unknown]
  - Pain [Not Recovered/Not Resolved]
  - Anhedonia [Not Recovered/Not Resolved]
  - Subdural haematoma [Unknown]
  - Panic attack [Unknown]
  - Amnesia [Unknown]
  - Insomnia [Unknown]
  - Confusional state [Unknown]
  - Multiple injuries [Not Recovered/Not Resolved]
  - Irritability [Unknown]
  - Erectile dysfunction [Unknown]
  - Dizziness [Unknown]
  - Physical disability [Not Recovered/Not Resolved]
  - Tension [Not Recovered/Not Resolved]
  - Economic problem [Not Recovered/Not Resolved]
  - Hypoaesthesia [Unknown]
  - Disturbance in attention [Unknown]
  - Seizure [Unknown]
  - Vision blurred [Unknown]
  - Psychological trauma [Not Recovered/Not Resolved]
  - Loss of employment [Not Recovered/Not Resolved]

NARRATIVE: CASE EVENT DATE: 20100430
